FAERS Safety Report 18154942 (Version 4)
Quarter: 2022Q2

REPORT INFORMATION
  Report Type: Report from Study
  Country: EG (occurrence: EG)
  Receive Date: 20200817
  Receipt Date: 20220526
  Transmission Date: 20220721
  Serious: Yes (Other)
  Sender: FDA-Public Use
  Company Number: EG-BAYER-2020-166131

PATIENT
  Sex: Male

DRUGS (11)
  1. EYLEA [Suspect]
     Active Substance: AFLIBERCEPT
     Indication: Diabetic retinal oedema
     Dosage: UNK (SOLUTION FOR INJECTION)
     Route: 031
     Dates: start: 2015
  2. EYLEA [Suspect]
     Active Substance: AFLIBERCEPT
     Dosage: OS (SOLUTION FOR INJECTION)
     Route: 031
     Dates: start: 20200712, end: 20200712
  3. EYLEA [Suspect]
     Active Substance: AFLIBERCEPT
     Dosage: OU (SOLUTION FOR INJECTION)
     Route: 031
     Dates: start: 20211220, end: 20211220
  4. INSULIN NOS [Concomitant]
     Active Substance: INSULIN NOS
     Indication: Diabetes mellitus
     Dosage: 40 U, IN THE MORNING
     Dates: start: 2010
  5. INSULIN NOS [Concomitant]
     Active Substance: INSULIN NOS
     Dosage: 20 U, AT NIGHT
     Dates: start: 2010
  6. ERASTAPEX TRIO [Concomitant]
     Indication: Hypertension
     Dosage: 1 DF, QD, BEFORE BREAKFAST
     Dates: start: 2019
  7. MAVILOR [Concomitant]
     Indication: Hypertension
     Dosage: 1 DF, QD, IN THE AFTERNOON
     Dates: start: 2018
  8. CRESTOR [Concomitant]
     Active Substance: ROSUVASTATIN CALCIUM
     Indication: Lipids abnormal
     Dosage: 1 DF, QD
     Dates: start: 2016
  9. ALPHINTERN [Concomitant]
     Indication: Eye haemorrhage
     Dosage: 3 DF, QD, IN THE MORNING, IN THE AFTERNOON AND AT NIGHT
     Dates: start: 201909
  10. RUTA C [Concomitant]
     Indication: Eye haemorrhage
     Dosage: 2 DF, QD, 1 IN THE MORNING AND 1 AT NIGHT
     Dates: start: 201909
  11. CALCIUM DOBESILATE [Concomitant]
     Active Substance: CALCIUM DOBESILATE
     Indication: Eye haemorrhage
     Dosage: 1 DF, QD, IN THE AFTERNOON
     Dates: start: 201909

REACTIONS (7)
  - Blindness transient [Recovered/Resolved]
  - Eye haemorrhage [Recovered/Resolved]
  - Eye haemorrhage [Recovering/Resolving]
  - Dyspnoea [Recovered/Resolved]
  - Gait disturbance [Recovered/Resolved]
  - Visual impairment [Recovering/Resolving]
  - Drug ineffective [Unknown]

NARRATIVE: CASE EVENT DATE: 20160101
